FAERS Safety Report 18608514 (Version 1)
Quarter: 2020Q4

REPORT INFORMATION
  Report Type: Spontaneous
  Country: TR (occurrence: TR)
  Receive Date: 20201212
  Receipt Date: 20201212
  Transmission Date: 20210114
  Serious: Yes (Other)
  Sender: FDA-Public Use
  Company Number: TR-LUPIN PHARMACEUTICALS INC.-2020-04690

PATIENT

DRUGS (2)
  1. PHENOBARBITAL. [Suspect]
     Active Substance: PHENOBARBITAL
     Indication: NEONATAL SEIZURE
     Dosage: UNK (FIRST LINE TREATMENT)
     Route: 065
  2. LEVETIRACETAM. [Suspect]
     Active Substance: LEVETIRACETAM
     Indication: NEONATAL SEIZURE
     Dosage: UNK LOADING DOSE OF 10 MG/KG/DAY AND MAINTAINED ON DOSE OF 10 MG/KG/DAY
     Route: 042

REACTIONS (1)
  - Neutropenia [Recovered/Resolved]
